FAERS Safety Report 5754099-0 (Version None)
Quarter: 2008Q2

REPORT INFORMATION
  Report Type: 
  Country: None (occurrence: None)
  Receive Date: 20080530
  Receipt Date: 20080527
  Transmission Date: 20081010
  Serious: Yes (Other)
  Sender: FDA-Public Use
  Company Number: PHHY2008BR08884

PATIENT

DRUGS (3)
  1. TEGRETOL [Suspect]
     Indication: CONVULSION
     Dosage: 400 MG, QD
     Route: 048
  2. URBANYL [Concomitant]
     Indication: ANXIETY
     Dosage: 20 MG, QD
  3. URBANYL [Concomitant]
     Indication: NERVOUSNESS

REACTIONS (3)
  - AMNESIA [None]
  - LACERATION [None]
  - LIMB INJURY [None]
